FAERS Safety Report 16811782 (Version 2)
Quarter: 2019Q3

REPORT INFORMATION
  Report Type: Spontaneous
  Country: US (occurrence: US)
  Receive Date: 20190916
  Receipt Date: 20190926
  Transmission Date: 20191005
  Serious: Yes (Other)
  Sender: FDA-Public Use
  Company Number: US-ALLERGAN-1937264US

PATIENT
  Sex: Female
  Weight: 48.07 kg

DRUGS (15)
  1. PROZAC [Concomitant]
     Active Substance: FLUOXETINE HYDROCHLORIDE
     Indication: DEPRESSION
     Dosage: 30 MG, QD
     Route: 048
  2. GABAPENTIN. [Concomitant]
     Active Substance: GABAPENTIN
     Dosage: 300 MG, BID
     Route: 048
  3. ASPIRIN. [Concomitant]
     Active Substance: ASPIRIN
     Indication: CARDIAC DISORDER
     Dosage: 81 MG
     Route: 048
  4. PAMPRIN [Concomitant]
     Active Substance: IBUPROFEN
     Indication: MENOPAUSAL SYMPTOMS
     Dosage: UNK, PRN
     Route: 048
  5. PEPCID AC [Concomitant]
     Active Substance: FAMOTIDINE
     Dosage: 10 MG
     Route: 048
  6. LINZESS [Suspect]
     Active Substance: LINACLOTIDE
     Indication: IMPAIRED GASTRIC EMPTYING
     Dosage: 72 ?G
     Route: 048
     Dates: start: 201909, end: 201909
  7. VERAPAMIL [Concomitant]
     Active Substance: VERAPAMIL HYDROCHLORIDE
     Indication: TACHYCARDIA
     Dosage: 180 MG, QD
     Route: 048
  8. ONDANSETRON [Concomitant]
     Active Substance: ONDANSETRON
     Indication: NAUSEA
     Dosage: UNK, PRN
     Route: 048
  9. OMEPRAZOLE. [Concomitant]
     Active Substance: OMEPRAZOLE
     Indication: REFLUX GASTRITIS
     Dosage: 40 MG, QD
     Route: 048
  10. BEANO [Concomitant]
     Active Substance: ASPERGILLUS NIGER .ALPHA.-GALACTOSIDASE
     Indication: IMPAIRED GASTRIC EMPTYING
     Dosage: UNK, PRN
     Route: 048
  11. VERAPAMIL [Concomitant]
     Active Substance: VERAPAMIL HYDROCHLORIDE
     Indication: HYPERTENSION
  12. MOTILIUM [Concomitant]
     Active Substance: DOMPERIDONE
     Indication: IMPAIRED GASTRIC EMPTYING
     Dosage: UNK
     Route: 048
  13. LINZESS [Suspect]
     Active Substance: LINACLOTIDE
     Indication: IRRITABLE BOWEL SYNDROME
  14. MARIJUANA [Concomitant]
     Active Substance: CANNABIS SATIVA SUBSP. INDICA TOP
     Indication: APPETITE DISORDER
     Dosage: UNK
     Route: 055
  15. SIMETHICONE (DIMETHICONE) [Concomitant]
     Active Substance: DIMETHICONE
     Indication: IMPAIRED GASTRIC EMPTYING
     Dosage: REGULARLY
     Route: 048

REACTIONS (9)
  - Impaired gastric emptying [Recovered/Resolved]
  - Therapy cessation [Unknown]
  - Memory impairment [Unknown]
  - Delusion [Recovered/Resolved]
  - Abdominal pain upper [Recovered/Resolved]
  - Cerebrovascular accident [Recovered/Resolved]
  - Psychotic disorder [Recovered/Resolved]
  - Inappropriate schedule of product administration [Unknown]
  - Off label use [Unknown]

NARRATIVE: CASE EVENT DATE: 20190824
